FAERS Safety Report 7126476-7 (Version None)
Quarter: 2010Q4

REPORT INFORMATION
  Report Type: 
  Country: None (occurrence: None)
  Receive Date: 20101115
  Receipt Date: 20101108
  Transmission Date: 20110411
  Serious: Yes (Hospitalization)
  Sender: FDA-Public Use
  Company Number: 2010AC000077

PATIENT
  Age: 86 Year
  Sex: Female

DRUGS (24)
  1. DIGOXIN [Suspect]
     Dosage: 0.125 MG;QD;PO
     Route: 048
     Dates: start: 20031001
  2. LYRICA [Concomitant]
  3. CYMBALTA [Concomitant]
  4. VICODIN [Concomitant]
  5. XANAX [Concomitant]
  6. ATROPINE [Concomitant]
  7. DIGIBIND [Concomitant]
  8. NICOTINE [Concomitant]
  9. ALPRAZOLAM [Concomitant]
  10. ZOCOR [Concomitant]
  11. PLAVIX [Concomitant]
  12. DARVOCET [Concomitant]
  13. PROTONIX [Concomitant]
  14. METROLOL [Concomitant]
  15. AMIODARONE [Concomitant]
  16. ISOSORBIDE DINITRATE [Concomitant]
  17. TIAZAC [Concomitant]
  18. FUROSEMIDE [Concomitant]
  19. POTASSIUM CHLORIDE [Concomitant]
  20. LEVOXYL [Concomitant]
  21. HALCION [Concomitant]
  22. DILTIAZEM [Concomitant]
  23. NITROGLYCERIN [Concomitant]
  24. ISORDIL [Concomitant]

REACTIONS (23)
  - ANXIETY [None]
  - BRADYCARDIA [None]
  - CARDIAC FLUTTER [None]
  - DEPRESSION [None]
  - EJECTION FRACTION DECREASED [None]
  - ELECTROCARDIOGRAM ST SEGMENT DEPRESSION [None]
  - FALL [None]
  - HIP FRACTURE [None]
  - INTERVERTEBRAL DISC PROTRUSION [None]
  - LEFT ATRIAL DILATATION [None]
  - LEFT VENTRICULAR HYPERTROPHY [None]
  - MITRAL VALVE INCOMPETENCE [None]
  - MITRAL VALVE STENOSIS [None]
  - MULTIPLE INJURIES [None]
  - PLEURAL EFFUSION [None]
  - PNEUMONIA [None]
  - PYREXIA [None]
  - RENAL CYST [None]
  - RESTLESS LEGS SYNDROME [None]
  - SUICIDAL IDEATION [None]
  - THERAPEUTIC AGENT TOXICITY [None]
  - VENTRICULAR EXTRASYSTOLES [None]
  - VENTRICULAR HYPOKINESIA [None]
